FAERS Safety Report 4681109-4 (Version None)
Quarter: 2005Q2

REPORT INFORMATION
  Report Type: 
  Country: None (occurrence: None)
  Receive Date: 20050601
  Receipt Date: 20050517
  Transmission Date: 20051028
  Serious: Yes (Hospitalization)
  Sender: FDA-Public Use
  Company Number: US_0401100042

PATIENT
  Age: 53 Year
  Sex: Male
  Weight: 91 kg

DRUGS (8)
  1. HUMALOG [Suspect]
     Indication: DIABETES MELLITUS
     Dosage: 29 U DAY
     Dates: start: 19970101
  2. HUMULIN N [Suspect]
     Indication: DIABETES MELLITUS
     Dosage: 8 U/2 DAY
     Dates: start: 19940101
  3. HUMULIN R [Suspect]
     Indication: DIABETES MELLITUS
     Dates: end: 19970101
  4. LIPITOR [Concomitant]
  5. OCUVITE [Concomitant]
  6. FOLIC ACID [Concomitant]
  7. VITAMIN B6 [Concomitant]
  8. VITAMIN B12 [Concomitant]

REACTIONS (9)
  - ARTERIAL OCCLUSIVE DISEASE [None]
  - BLOOD GLUCOSE DECREASED [None]
  - BLOOD GLUCOSE INCREASED [None]
  - DRUG EFFECT DECREASED [None]
  - DRUG INEFFECTIVE [None]
  - HYPERTENSION [None]
  - INJECTION SITE PAIN [None]
  - MEDICAL DEVICE COMPLICATION [None]
  - PHARMACEUTICAL PRODUCT COMPLAINT [None]
